FAERS Safety Report 7911534-7 (Version None)
Quarter: 2011Q4

REPORT INFORMATION
  Report Type: 
  Country: None (occurrence: None)
  Receive Date: 20111114
  Receipt Date: 20111031
  Transmission Date: 20120403
  Serious: Yes (Other)
  Sender: FDA-Public Use
  Company Number: CA-ELI_LILLY_AND_COMPANY-CA201110008279

PATIENT
  Sex: Female

DRUGS (15)
  1. ZYPREXA [Suspect]
     Dosage: 2.5 MG, EACH EVENING
  2. METHYLPHENIDATE [Concomitant]
  3. SERTRALINE HYDROCHLORIDE [Concomitant]
  4. ZYPREXA [Suspect]
     Indication: BIPOLAR DISORDER
     Dosage: 10 MG, UNK
     Dates: end: 20080104
  5. ZYPREXA [Suspect]
     Dosage: 2.5 MG, UNK
  6. DESYREL [Concomitant]
  7. ZYPREXA [Suspect]
     Indication: BIPOLAR DISORDER
     Dosage: 15 MG, EACH EVENING
     Dates: start: 20060721, end: 20080104
  8. ZYPREXA [Suspect]
     Dosage: 5 MG, EACH EVENING
  9. TEGRETOL [Concomitant]
  10. RISPERDAL [Concomitant]
  11. FLURAZEPAM [Concomitant]
  12. QUETIAPINE [Concomitant]
  13. ASPIRIN [Concomitant]
  14. MICARDIS [Concomitant]
  15. ZYPREXA [Suspect]
     Dosage: 10 MG, EACH EVENING

REACTIONS (11)
  - DIABETIC KETOACIDOSIS [None]
  - WHITE BLOOD CELL COUNT INCREASED [None]
  - ASPARTATE AMINOTRANSFERASE INCREASED [None]
  - HYPERGLYCAEMIA [None]
  - MITRAL VALVE STENOSIS [None]
  - BLOOD CHOLESTEROL INCREASED [None]
  - ALANINE AMINOTRANSFERASE INCREASED [None]
  - TYPE 2 DIABETES MELLITUS [None]
  - BLOOD ALKALINE PHOSPHATASE INCREASED [None]
  - WEIGHT INCREASED [None]
  - ALBUMIN GLOBULIN RATIO INCREASED [None]
